FAERS Safety Report 7253127-3 (Version None)
Quarter: 2011Q1

REPORT INFORMATION
  Report Type: 
  Country: None (occurrence: None)
  Receive Date: 20110129
  Receipt Date: 20100127
  Transmission Date: 20110831
  Serious: No
  Sender: FDA-Public Use
  Company Number: US-ABBOTT-10P-163-0622655-00

PATIENT
  Sex: Female

DRUGS (9)
  1. LEUKOVORIN [Concomitant]
     Indication: JUVENILE ARTHRITIS
  2. METHOTREXATE [Concomitant]
     Indication: JUVENILE ARTHRITIS
  3. SML OPTH OINTMENT [Concomitant]
     Indication: UVEITIS
  4. ZYRTEC [Concomitant]
     Indication: PRODUCT USED FOR UNKNOWN INDICATION
  5. SINGULAIR [Concomitant]
     Indication: ASTHMA
  6. ATROPINE OPTH [Concomitant]
     Indication: UVEITIS
  7. HUMIRA [Suspect]
     Indication: JUVENILE ARTHRITIS
     Dates: start: 20091014
  8. HUMIRA [Suspect]
     Indication: PSORIATIC ARTHROPATHY
  9. PREDNISOLONE OPTH DROPS [Concomitant]
     Indication: UVEITIS

REACTIONS (1)
  - COUGH [None]
